FAERS Safety Report 12681369 (Version 1)
Quarter: 2016Q3

REPORT INFORMATION
  Report Type: Report from Study
  Country: US (occurrence: US)
  Receive Date: 20160824
  Receipt Date: 20160824
  Transmission Date: 20161109
  Serious: Yes (Other)
  Sender: FDA-Public Use
  Company Number: US-BAUSCH-BL-2016-020294

PATIENT
  Age: 66 Year
  Sex: Female

DRUGS (11)
  1. PREDNISOLONE. [Suspect]
     Active Substance: PREDNISOLONE
     Indication: GLAUCOMA
  2. TRIAMCINOLONE ACETATE [Suspect]
     Active Substance: TRIAMCINOLONE ACETONIDE
     Indication: AUTOIMMUNE RETINOPATHY
     Route: 065
  3. METHOTREXATE. [Suspect]
     Active Substance: METHOTREXATE
     Indication: GLAUCOMA
  4. BEVACIZUMAB [Suspect]
     Active Substance: BEVACIZUMAB
     Indication: GLAUCOMA
  5. METHOTREXATE. [Suspect]
     Active Substance: METHOTREXATE
     Indication: AUTOIMMUNE RETINOPATHY
     Route: 065
  6. TRIAMCINOLONE ACETATE [Suspect]
     Active Substance: TRIAMCINOLONE ACETONIDE
     Indication: GLAUCOMA
  7. FLUOCINOLONE ACETATE [Suspect]
     Active Substance: FLUOCINOLONE ACETONIDE
     Indication: AUTOIMMUNE RETINOPATHY
     Route: 065
  8. FLUOCINOLONE ACETATE [Suspect]
     Active Substance: FLUOCINOLONE ACETONIDE
     Indication: GLAUCOMA
  9. PREDNISOLONE. [Suspect]
     Active Substance: PREDNISOLONE
     Indication: AUTOIMMUNE RETINOPATHY
     Route: 065
  10. PREDNISOLONE. [Suspect]
     Active Substance: PREDNISOLONE
     Indication: IRITIS
  11. BEVACIZUMAB [Suspect]
     Active Substance: BEVACIZUMAB
     Indication: AUTOIMMUNE RETINOPATHY
     Route: 065

REACTIONS (5)
  - Uveitis [None]
  - Intraocular pressure increased [Unknown]
  - Cystoid macular oedema [None]
  - Vitreous haemorrhage [None]
  - Drug effect incomplete [Unknown]
